FAERS Safety Report 7953194-5 (Version None)
Quarter: 2011Q4

REPORT INFORMATION
  Report Type: 
  Country: None (occurrence: None)
  Receive Date: 20111201
  Receipt Date: 20111122
  Transmission Date: 20120403
  Serious: Yes (Hospitalization)
  Sender: FDA-Public Use
  Company Number: US-ASTRAZENECA-2011SE59696

PATIENT
  Age: 36 Year
  Sex: Male
  Weight: 97.1 kg

DRUGS (2)
  1. MULTI-VITAMIN [Concomitant]
     Dosage: DAILY
  2. TOPROL-XL [Suspect]
     Route: 048

REACTIONS (1)
  - DRUG DOSE OMISSION [None]
